FAERS Safety Report 8119483-9 (Version None)
Quarter: 2012Q1

REPORT INFORMATION
  Report Type: 
  Country: None (occurrence: None)
  Receive Date: 20120207
  Receipt Date: 20120127
  Transmission Date: 20120608
  Serious: Yes (Hospitalization, Other)
  Sender: FDA-Public Use
  Company Number: PHHY2012CA005898

PATIENT
  Sex: Female

DRUGS (8)
  1. AFINITOR [Suspect]
     Route: 048
     Dates: start: 20100101, end: 20120113
  2. VENTOLIN [Concomitant]
     Dates: start: 20100101
  3. VALSARTAN/HYDROCHLOORTHIAZIDE [Concomitant]
     Dates: start: 20100101
  4. NORVASC [Concomitant]
     Dates: start: 20100101
  5. ADVAIR DISKUS 100/50 [Concomitant]
     Dates: start: 20100101
  6. COPHYLAC [Concomitant]
  7. AFINITOR [Suspect]
     Indication: RENAL CELL CARCINOMA
     Dosage: 5 MG, DAILY
     Route: 048
     Dates: start: 20100801
  8. PANTOPRAZOLE SODIUM [Concomitant]
     Dosage: 90 MG, TID
     Route: 048

REACTIONS (10)
  - CHRONIC OBSTRUCTIVE PULMONARY DISEASE [None]
  - RESTRICTIVE PULMONARY DISEASE [None]
  - ASTHMA [None]
  - INTERSTITIAL LUNG DISEASE [None]
  - PNEUMONIA [None]
  - BODY TEMPERATURE INCREASED [None]
  - ANAEMIA [None]
  - COUGH [None]
  - DYSPNOEA [None]
  - INFLUENZA [None]
